FAERS Safety Report 7399128-6 (Version None)
Quarter: 2011Q1

REPORT INFORMATION
  Report Type: 
  Country: None (occurrence: None)
  Receive Date: 20110328
  Receipt Date: 20110314
  Transmission Date: 20110831
  Serious: No
  Sender: FDA-Public Use
  Company Number: 2011001020

PATIENT
  Sex: Male

DRUGS (1)
  1. TARCEVA [Suspect]
     Indication: GASTRIC CANCER
     Dosage: ORAL
     Route: 048

REACTIONS (1)
  - NO ADVERSE EVENT [None]
